FAERS Safety Report 6338355-3 (Version None)
Quarter: 2009Q3

REPORT INFORMATION
  Report Type: 
  Country: None (occurrence: None)
  Receive Date: 20090902
  Receipt Date: 20090826
  Transmission Date: 20100115
  Serious: Yes (Hospitalization)
  Sender: FDA-Public Use
  Company Number: SG-GENENTECH-289374

PATIENT
  Age: 59 Year
  Sex: Male

DRUGS (5)
  1. ALTEPLASE [Suspect]
     Indication: ACUTE MYOCARDIAL INFARCTION
     Dosage: 90 MG, UNK
     Route: 042
  2. HEPARIN [Suspect]
     Indication: ACUTE MYOCARDIAL INFARCTION
     Dosage: 5000 UNIT, UNK
     Route: 042
  3. HEPARIN [Suspect]
     Dosage: 850 UNK, UNK
     Route: 042
  4. ASPIRIN [Suspect]
     Indication: ACUTE MYOCARDIAL INFARCTION
     Dosage: UNK
     Route: 048
  5. CLOPIDOGREL [Suspect]
     Indication: ACUTE MYOCARDIAL INFARCTION
     Dosage: UNK
     Route: 048

REACTIONS (4)
  - LOCAL SWELLING [None]
  - NECK PAIN [None]
  - THYROID HAEMORRHAGE [None]
  - TRACHEAL OBSTRUCTION [None]
